FAERS Safety Report 19758900 (Version 2)
Quarter: 2021Q4

REPORT INFORMATION
  Report Type: Spontaneous
  Country: JP (occurrence: JP)
  Receive Date: 20210829
  Receipt Date: 20211027
  Transmission Date: 20220303
  Serious: Yes (Other)
  Sender: FDA-Public Use
  Company Number: JP-UCBSA-2021040318

PATIENT
  Age: 4 Year
  Sex: Male

DRUGS (11)
  1. VIMPAT [Suspect]
     Active Substance: LACOSAMIDE
     Indication: Partial seizures with secondary generalisation
     Dosage: 25 MILLIGRAM, 2X/DAY (BID)
     Dates: start: 201712, end: 201712
  2. LEVETIRACETAM [Suspect]
     Active Substance: LEVETIRACETAM
     Indication: Partial seizures with secondary generalisation
     Dosage: 500 MILLIGRAMS DAILY
     Route: 048
     Dates: start: 201710
  3. LEVETIRACETAM [Suspect]
     Active Substance: LEVETIRACETAM
     Dosage: 1000 MILLIGRAMS DAILY
     Route: 048
     Dates: start: 201712, end: 201812
  4. LEVETIRACETAM [Suspect]
     Active Substance: LEVETIRACETAM
     Dosage: 750 MILLIGRAMS DAILY
     Route: 048
     Dates: start: 201812
  5. LEVETIRACETAM [Suspect]
     Active Substance: LEVETIRACETAM
     Dosage: 300 MILLIGRAMS DAILY
     Route: 048
     Dates: end: 202106
  6. VALPROATE SODIUM [Suspect]
     Active Substance: VALPROATE SODIUM
     Indication: Partial seizures with secondary generalisation
     Dosage: 500 MILLIGRAM, ONCE DAILY (QD)
  7. FYCOMPA [Suspect]
     Active Substance: PERAMPANEL
     Indication: Partial seizures with secondary generalisation
     Dosage: 4 MILLIGRAM, ONCE DAILY (QD)
  8. FYCOMPA [Suspect]
     Active Substance: PERAMPANEL
     Dosage: 2 MILLIGRAM, ONCE DAILY (QD)
  9. ZONISAMIDE [Suspect]
     Active Substance: ZONISAMIDE
     Indication: Partial seizures with secondary generalisation
     Dosage: UNK
  10. MYSTAN [Suspect]
     Active Substance: CLOBAZAM
     Indication: Partial seizures with secondary generalisation
     Dosage: 10 MILLIGRAM, ONCE DAILY (QD)
  11. ETHOSUXIMIDE [Suspect]
     Active Substance: ETHOSUXIMIDE
     Indication: Partial seizures with secondary generalisation
     Dosage: 500 MILLIGRAM, ONCE DAILY (QD)

REACTIONS (2)
  - Head injury [Recovered/Resolved]
  - Multiple-drug resistance [Unknown]
